FAERS Safety Report 17793651 (Version 1)
Quarter: 2020Q2

REPORT INFORMATION
  Report Type: Spontaneous
  Country: US (occurrence: US)
  Receive Date: 20200515
  Receipt Date: 20200515
  Transmission Date: 20200714
  Serious: Yes (Other)
  Sender: FDA-Public Use
  Company Number: US-PROGENICS PHARMACEUTICALS-2020PGE00002

PATIENT
  Age: 30 Year
  Sex: Female
  Weight: 66.21 kg

DRUGS (5)
  1. FLORINEF ACETATE [Concomitant]
     Active Substance: FLUDROCORTISONE ACETATE
     Dosage: UNK MG
  2. AZEDRA [Suspect]
     Active Substance: IOBENGUANE I-131
     Indication: PHAEOCHROMOCYTOMA
     Dosage: UNK
     Dates: start: 20191118
  3. AZEDRA [Suspect]
     Active Substance: IOBENGUANE I-131
     Dosage: UNK, 1X/DAY
     Dates: start: 20200206, end: 20200210
  4. CORTEF [Concomitant]
     Active Substance: HYDROCORTISONE
     Dosage: 15 MG, 1X/DAY
  5. SYNTHROID [Concomitant]
     Active Substance: LEVOTHYROXINE SODIUM
     Dosage: 112 ?G

REACTIONS (5)
  - Neutrophil count decreased [Not Recovered/Not Resolved]
  - Off label use [Recovered/Resolved]
  - Platelet count decreased [Not Recovered/Not Resolved]
  - White blood cell count decreased [Not Recovered/Not Resolved]
  - Product dose omission [Not Recovered/Not Resolved]

NARRATIVE: CASE EVENT DATE: 20200203
